FAERS Safety Report 8615385-X (Version None)
Quarter: 2012Q3

REPORT INFORMATION
  Report Type: 
  Country: None (occurrence: None)
  Receive Date: 20120823
  Receipt Date: 20120820
  Transmission Date: 20120928
  Serious: Yes (Hospitalization, Other)
  Sender: FDA-Public Use
  Company Number: US-PFIZER INC-2012203512

PATIENT
  Age: 63 Year
  Sex: Female
  Weight: 47 kg

DRUGS (2)
  1. LIPITOR [Suspect]
     Indication: HYPERTENSION
     Dosage: 10 MG,DAILY
     Route: 048
  2. AMARYL [Concomitant]
     Indication: DIABETES MELLITUS
     Dosage: 4 MG, 2X/DAY

REACTIONS (5)
  - HYPERTENSION [None]
  - BRAIN INJURY [None]
  - CEREBROVASCULAR ACCIDENT [None]
  - ARTERIAL OCCLUSIVE DISEASE [None]
  - HEMIPARESIS [None]
